FAERS Safety Report 9167671 (Version 1)
Quarter: 2013Q1

REPORT INFORMATION
  Report Type: Spontaneous
  Country: GB (occurrence: None)
  Receive Date: 20130304
  Receipt Date: 20130304
  Transmission Date: 20140127
  Serious: No
  Sender: FDA-Public Use
  Company Number: AUR-APL-2013-01635

PATIENT
  Sex: Female

DRUGS (1)
  1. AMOXICILLIN (AMOXICILLIN) [Suspect]
     Dosage: 1500MG (500 MG, 3 IN 1 D), ORAL
     Dates: end: 20130205

REACTIONS (3)
  - Dyspnoea [None]
  - Anxiety [None]
  - Abasia [None]
